FAERS Safety Report 22749314 (Version 10)
Quarter: 2025Q1

REPORT INFORMATION
  Report Type: Spontaneous
  Country: US (occurrence: US)
  Receive Date: 20230725
  Receipt Date: 20250213
  Transmission Date: 20250409
  Serious: Yes (Other)
  Sender: PFIZER
  Company Number: US-PFIZER INC-PV202300022327

PATIENT
  Age: 69 Year
  Sex: Female
  Weight: 90.703 kg

DRUGS (1)
  1. IBRANCE [Suspect]
     Active Substance: PALBOCICLIB
     Indication: Neoplasm malignant
     Route: 048

REACTIONS (2)
  - Cholecystectomy [Unknown]
  - Blood test abnormal [Unknown]
